FAERS Safety Report 5740692-8 (Version None)
Quarter: 2008Q2

REPORT INFORMATION
  Report Type: 
  Country: None (occurrence: None)
  Receive Date: 20080516
  Receipt Date: 20080507
  Transmission Date: 20081010
  Serious: Yes (Death)
  Sender: FDA-Public Use
  Company Number: JP-SANOFI-SYNTHELABO-A01200805338

PATIENT
  Age: 47 Year
  Sex: Female

DRUGS (5)
  1. FLUOROURACIL [Concomitant]
     Dosage: UNK
     Route: 040
     Dates: start: 20070101, end: 20070101
  2. FLUOROURACIL [Concomitant]
     Dosage: UNK
     Route: 041
     Dates: start: 20070101, end: 20070101
  3. CALCIUM LEVOFOLINATE [Concomitant]
     Dosage: UNK
     Route: 041
     Dates: start: 20070101, end: 20070101
  4. OXALIPLATIN [Suspect]
     Indication: RECTAL CANCER
     Dosage: UNK
     Route: 041
     Dates: start: 20070101, end: 20070101
  5. NEUPOGEN [Concomitant]
     Dosage: UNK
     Route: 058
     Dates: start: 20070101, end: 20070301

REACTIONS (1)
  - ACUTE MYELOID LEUKAEMIA [None]
